FAERS Safety Report 10083546 (Version 1)
Quarter: 2014Q2

REPORT INFORMATION
  Report Type: Spontaneous
  Country: US (occurrence: None)
  Receive Date: 20140416
  Receipt Date: 20140416
  Transmission Date: 20141212
  Serious: No
  Sender: FDA-Public Use
  Company Number: None

PATIENT
  Age: 46 Year
  Sex: Female
  Weight: 45.36 kg

DRUGS (1)
  1. TRI-LUMA [Suspect]
     Indication: CHLOASMA

REACTIONS (3)
  - Chloasma [None]
  - Hair growth abnormal [None]
  - Condition aggravated [None]
